FAERS Safety Report 11267062 (Version 2)
Quarter: 2015Q3

REPORT INFORMATION
  Report Type: Report from Study
  Country: VE (occurrence: VE)
  Receive Date: 20150713
  Receipt Date: 20150723
  Transmission Date: 20151125
  Serious: Yes (Other)
  Sender: FDA-Public Use
  Company Number: VE-ABBVIE-15K-178-1423991-00

PATIENT
  Sex: Male

DRUGS (1)
  1. HUMIRA [Suspect]
     Active Substance: ADALIMUMAB
     Indication: PSORIATIC ARTHROPATHY
     Route: 058
     Dates: start: 2010, end: 2013

REACTIONS (7)
  - Renal neoplasm [Unknown]
  - Lymphadenopathy [Recovering/Resolving]
  - B-cell small lymphocytic lymphoma [Recovering/Resolving]
  - Retroperitoneal lymphadenopathy [Recovering/Resolving]
  - Prostate cancer [Recovering/Resolving]
  - Skin cancer [Recovering/Resolving]
  - Renal cancer [Unknown]

NARRATIVE: CASE EVENT DATE: 2013
